FAERS Safety Report 12193764 (Version 1)
Quarter: 2016Q1

REPORT INFORMATION
  Report Type: Spontaneous
  Country: US (occurrence: US)
  Receive Date: 20160321
  Receipt Date: 20160321
  Transmission Date: 20160526
  Serious: No
  Sender: FDA-Public Use
  Company Number: US-GLENMARK PHARMACEUTICALS INC, USA.-2015GMK017066

PATIENT

DRUGS (3)
  1. RISPERIDONE. [Concomitant]
     Active Substance: RISPERIDONE
     Indication: AFFECTIVE DISORDER
     Dosage: 0.5 MG, BID
     Dates: start: 20140923
  2. LITHIUM CARBONATE CAPSULES [Suspect]
     Active Substance: LITHIUM CARBONATE
     Indication: AFFECTIVE DISORDER
     Dosage: 150 MG, HS (ONE AT NIGHT)
     Route: 048
     Dates: start: 201402, end: 20150510
  3. LITHIUM                            /00033702/ [Concomitant]
     Indication: AFFECTIVE DISORDER
     Dosage: 300 MG, BID, ONCE IN THE MORNING
     Route: 048
     Dates: start: 201402

REACTIONS (6)
  - Fear [Unknown]
  - Product container issue [Unknown]
  - Abnormal behaviour [Unknown]
  - Drug dose omission [Unknown]
  - Product physical issue [Unknown]
  - Psychomotor hyperactivity [Unknown]
